FAERS Safety Report 5305782-2 (Version None)
Quarter: 2007Q2

REPORT INFORMATION
  Report Type: 
  Country: None (occurrence: None)
  Receive Date: 20070420
  Receipt Date: 20070420
  Transmission Date: 20071010
  Serious: No
  Sender: FDA-Public Use
  Company Number: None

PATIENT
  Age: 20 Year
  Sex: Female
  Weight: 68.0396 kg

DRUGS (1)
  1. MONISTAT 3 [Suspect]
     Indication: FUNGAL INFECTION
     Dosage: PREFILLED APPLICATOR   3 DAYS  VAG
     Route: 067
     Dates: start: 20070417, end: 20070418

REACTIONS (3)
  - CRYING [None]
  - PAIN [None]
  - PHARMACEUTICAL PRODUCT COMPLAINT [None]
